FAERS Safety Report 7275959-8 (Version None)
Quarter: 2011Q1

REPORT INFORMATION
  Report Type: 
  Country: None (occurrence: None)
  Receive Date: 20110204
  Receipt Date: 20110201
  Transmission Date: 20110831
  Serious: Yes (Other)
  Sender: FDA-Public Use
  Company Number: A0911177A

PATIENT
  Age: 19 Year
  Sex: Female

DRUGS (3)
  1. ALCOHOLIC BEVERAGE [Suspect]
  2. LAMICTAL [Suspect]
     Indication: CONVULSION
     Dosage: 50MG TWICE PER DAY
     Route: 048
     Dates: start: 19980101
  3. NO CONCURRENT MEDICATION [Concomitant]

REACTIONS (1)
  - CONVULSION [None]
